FAERS Safety Report 8539872-8 (Version None)
Quarter: 2012Q3

REPORT INFORMATION
  Report Type: 
  Country: None (occurrence: None)
  Receive Date: 20120726
  Receipt Date: 20120724
  Transmission Date: 20120928
  Serious: Yes (Other)
  Sender: FDA-Public Use
  Company Number: US-PFIZER INC-2012169738

PATIENT
  Sex: Female
  Weight: 61.224 kg

DRUGS (10)
  1. CHANTIX [Suspect]
     Indication: SMOKING CESSATION THERAPY
     Dosage: 0.5 MG, 1X/DAY
     Route: 048
     Dates: start: 20080101, end: 20080101
  2. CHLORDIAZEPOXIDE [Concomitant]
     Indication: POST-TRAUMATIC STRESS DISORDER
     Dosage: 25 MG, AS NEEDED
  3. HYDROCODONE BITARTRATE + ACETAMINOPHEN [Concomitant]
     Indication: POST-TRAUMATIC STRESS DISORDER
     Dosage: 750MG/500 MG, 2X/DAY
  4. ALBUTEROL [Concomitant]
     Indication: HYPERSENSITIVITY
     Dosage: UNK
  5. HYDROCODONE [Concomitant]
     Dosage: UNK
  6. CHANTIX [Suspect]
     Dosage: UNK
     Route: 048
     Dates: start: 20120101
  7. CHANTIX [Suspect]
     Dosage: UNK
     Route: 048
     Dates: start: 20080101, end: 20080101
  8. METHOCARBAMOL [Concomitant]
     Dosage: 750 MG, DAILY
  9. LISINOPRIL [Concomitant]
     Indication: HYPERTENSION
     Dosage: 30 MG, DAILY
  10. HYDROCHLOROTHIAZIDE [Concomitant]
     Indication: HYPERTENSION
     Dosage: 25 MG, DAILY

REACTIONS (11)
  - ANGER [None]
  - IMPATIENCE [None]
  - STRESS [None]
  - FEELING ABNORMAL [None]
  - NIGHTMARE [None]
  - NAUSEA [None]
  - MOOD SWINGS [None]
  - DEPRESSION [None]
  - SCREAMING [None]
  - AGGRESSION [None]
  - AGITATION [None]
